FAERS Safety Report 16446295 (Version 4)
Quarter: 2021Q4

REPORT INFORMATION
  Report Type: Spontaneous
  Country: US (occurrence: None)
  Receive Date: 20190618
  Receipt Date: 20211216
  Transmission Date: 20220303
  Serious: Yes (Hospitalization, Other)
  Sender: FDA-Public Use
  Company Number: 2018SF14854

PATIENT
  Age: 843 Month
  Sex: Female

DRUGS (50)
  1. NEXIUM [Suspect]
     Active Substance: ESOMEPRAZOLE MAGNESIUM
     Indication: Gastrooesophageal reflux disease
     Route: 048
     Dates: start: 20090304, end: 201501
  2. NEXIUM [Suspect]
     Active Substance: ESOMEPRAZOLE MAGNESIUM
     Indication: Gastrooesophageal reflux disease
     Route: 048
     Dates: start: 20100129, end: 20140728
  3. NEXIUM [Suspect]
     Active Substance: ESOMEPRAZOLE MAGNESIUM
     Indication: Gastrooesophageal reflux disease
     Route: 048
     Dates: start: 20101122
  4. NEXIUM [Suspect]
     Active Substance: ESOMEPRAZOLE MAGNESIUM
     Indication: Gastrooesophageal reflux disease
     Route: 048
     Dates: start: 20120209
  5. NEXIUM [Suspect]
     Active Substance: ESOMEPRAZOLE MAGNESIUM
     Indication: Gastrooesophageal reflux disease
     Route: 048
     Dates: start: 20130213
  6. NEXIUM 24HR [Suspect]
     Active Substance: ESOMEPRAZOLE MAGNESIUM
     Indication: Gastrooesophageal reflux disease
     Route: 048
     Dates: start: 2009, end: 201501
  7. PRILOSEC [Suspect]
     Active Substance: OMEPRAZOLE MAGNESIUM
     Route: 048
  8. PROTONIX [Suspect]
     Active Substance: PANTOPRAZOLE SODIUM
     Indication: Gastrooesophageal reflux disease
     Route: 065
     Dates: start: 2000, end: 2009
  9. PLAVIX [Concomitant]
     Active Substance: CLOPIDOGREL BISULFATE
  10. MORPHINE [Concomitant]
     Active Substance: MORPHINE
  11. ANGIOMAX [Concomitant]
     Active Substance: BIVALIRUDIN
  12. LASIX [Concomitant]
     Active Substance: FUROSEMIDE
  13. COREG [Concomitant]
     Active Substance: CARVEDILOL
  14. ASPIRIN [Concomitant]
     Active Substance: ASPIRIN
  15. ZOCOR [Concomitant]
     Active Substance: SIMVASTATIN
  16. LANTUS [Concomitant]
     Active Substance: INSULIN GLARGINE
  17. NOVOLOG [Concomitant]
     Active Substance: INSULIN ASPART
  18. CLOPIDOGREL [Concomitant]
     Active Substance: CLOPIDOGREL BISULFATE
  19. NITROGLYCERIN [Concomitant]
     Active Substance: NITROGLYCERIN
  20. HYDROCHLOROTHIAZIDE [Concomitant]
     Active Substance: HYDROCHLOROTHIAZIDE
  21. DILTIAZEM [Concomitant]
     Active Substance: DILTIAZEM
  22. INSULIN NOS [Concomitant]
     Active Substance: INSULIN NOS
  23. XIBROM [Concomitant]
     Active Substance: BROMFENAC SODIUM
  24. DIGOXIN [Concomitant]
     Active Substance: DIGOXIN
  25. LEVAQUIN [Concomitant]
     Active Substance: LEVOFLOXACIN
  26. DORZOLAMIDE [Concomitant]
     Active Substance: DORZOLAMIDE
  27. PREDNISOLONE [Concomitant]
     Active Substance: PREDNISOLONE
  28. FUROSEMIDE [Concomitant]
     Active Substance: FUROSEMIDE
  29. BENZONATATE [Concomitant]
     Active Substance: BENZONATATE
  30. ZYMAR [Concomitant]
     Active Substance: GATIFLOXACIN
  31. ALPHAGAN P [Concomitant]
     Active Substance: BRIMONIDINE TARTRATE
  32. NUCYNTA [Concomitant]
     Active Substance: TAPENTADOL HYDROCHLORIDE
  33. HUMALOG [Concomitant]
     Active Substance: INSULIN LISPRO
  34. BRIMONIDINE [Concomitant]
     Active Substance: BRIMONIDINE TARTRATE
  35. WARFARIN [Concomitant]
     Active Substance: WARFARIN
  36. CRESTOR [Concomitant]
     Active Substance: ROSUVASTATIN CALCIUM
  37. XALATAN [Concomitant]
     Active Substance: LATANOPROST
  38. METOPROLOL [Concomitant]
     Active Substance: METOPROLOL
  39. CHOLECALCIFEROL [Concomitant]
     Active Substance: CHOLECALCIFEROL
  40. DUONEB [Concomitant]
     Active Substance: ALBUTEROL SULFATE\IPRATROPIUM BROMIDE
  41. PULMICORT TURBUHALER [Concomitant]
     Active Substance: BUDESONIDE
  42. COLACE [Concomitant]
     Active Substance: DOCUSATE SODIUM
  43. HECTOROL [Concomitant]
     Active Substance: DOXERCALCIFEROL
  44. FLONASE [Concomitant]
     Active Substance: FLUTICASONE PROPIONATE
  45. SINGULAIR [Concomitant]
     Active Substance: MONTELUKAST SODIUM
  46. SEVELAMER [Concomitant]
     Active Substance: SEVELAMER
  47. TYLENOL [Concomitant]
     Active Substance: ACETAMINOPHEN
  48. RENVELA [Concomitant]
     Active Substance: SEVELAMER CARBONATE
  49. BENADRYL [Concomitant]
     Active Substance: DIPHENHYDRAMINE HYDROCHLORIDE
  50. METOCLOPRAMIDE [Concomitant]
     Active Substance: METOCLOPRAMIDE

REACTIONS (6)
  - Acute kidney injury [Unknown]
  - Chronic kidney disease [Unknown]
  - End stage renal disease [Unknown]
  - Renal failure [Unknown]
  - Renal injury [Unknown]
  - Nephrogenic anaemia [Unknown]

NARRATIVE: CASE EVENT DATE: 20120701
